FAERS Safety Report 19455689 (Version 1)
Quarter: 2021Q2

REPORT INFORMATION
  Report Type: Spontaneous
  Country: US (occurrence: US)
  Receive Date: 20210623
  Receipt Date: 20210623
  Transmission Date: 20210717
  Serious: Yes (Disabling)
  Sender: FDA-Public Use
  Company Number: None

PATIENT
  Age: 26 Year
  Sex: Male
  Weight: 90 kg

DRUGS (1)
  1. DEXTROAMPHET SACCHARAT, AMPHET ASPARTATE, DEXTROAMPHET SULFATE AND AMPHET SULFAT [Suspect]
     Active Substance: AMPHETAMINE ASPARTATE\AMPHETAMINE SULFATE\DEXTROAMPHETAMINE SACCHARATE\DEXTROAMPHETAMINE SULFATE
     Indication: ATTENTION DEFICIT HYPERACTIVITY DISORDER
     Dosage: ?          QUANTITY:60 TABLET(S);?
     Route: 048
     Dates: start: 20210101, end: 20210623

REACTIONS (14)
  - Attention deficit hyperactivity disorder [None]
  - Heart rate increased [None]
  - Dyspnoea [None]
  - Obsessive-compulsive disorder [None]
  - Product substitution issue [None]
  - Manufacturing issue [None]
  - Therapeutic response changed [None]
  - Neck pain [None]
  - Paradoxical drug reaction [None]
  - Back pain [None]
  - Product quality issue [None]
  - Disturbance in attention [None]
  - Condition aggravated [None]
  - Psychomotor hyperactivity [None]

NARRATIVE: CASE EVENT DATE: 20210623
